FAERS Safety Report 5725161-3 (Version None)
Quarter: 2008Q2

REPORT INFORMATION
  Report Type: 
  Country: None (occurrence: None)
  Receive Date: 20080429
  Receipt Date: 20080416
  Transmission Date: 20081010
  Serious: Yes (Other)
  Sender: FDA-Public Use
  Company Number: 2008AP000726

PATIENT
  Sex: Female

DRUGS (5)
  1. PAROXETINE HCL [Suspect]
     Indication: PREMENSTRUAL SYNDROME
     Dosage: 40 MG;HS;PO; 5 MG;HS;PO
     Route: 048
     Dates: end: 20080301
  2. PAROXETINE HCL [Suspect]
     Indication: PREMENSTRUAL SYNDROME
     Dosage: 40 MG;HS;PO; 5 MG;HS;PO
     Route: 048
     Dates: start: 20020601
  3. PAROXETINE HCL [Suspect]
     Indication: PREMENSTRUAL SYNDROME
     Dosage: 40 MG;HS;PO; 5 MG;HS;PO
     Route: 048
     Dates: start: 20080401
  4. DULOXETINE [Concomitant]
  5. HYDROCHLORIDE [Concomitant]

REACTIONS (7)
  - ANGER [None]
  - CRYING [None]
  - IMPAIRED WORK ABILITY [None]
  - LIBIDO DECREASED [None]
  - SOMNOLENCE [None]
  - WEIGHT INCREASED [None]
  - WITHDRAWAL SYNDROME [None]
